FAERS Safety Report 21741134 (Version 1)
Quarter: 2022Q4

REPORT INFORMATION
  Report Type: Spontaneous
  Country: US (occurrence: US)
  Receive Date: 20221216
  Receipt Date: 20221216
  Transmission Date: 20230112
  Serious: No
  Sender: FDA-Public Use
  Company Number: US-AVEO ONCOLOGY-2022-AVEO-US000438

PATIENT

DRUGS (1)
  1. FOTIVDA [Suspect]
     Active Substance: TIVOZANIB HYDROCHLORIDE
     Indication: Renal cell carcinoma
     Dosage: 0.89 MG, DAILY FOR 21 DAYS WITH 7 DAYS OFF (28-DAY CYCLE)
     Route: 048
     Dates: start: 20220907, end: 2022

REACTIONS (7)
  - Hypertension [Unknown]
  - Nausea [Recovering/Resolving]
  - Stomatitis [Unknown]
  - Blood creatinine increased [Unknown]
  - Rash [Unknown]
  - Skin ulcer [Unknown]
  - Somnolence [Unknown]
